FAERS Safety Report 17249248 (Version 1)
Quarter: 2020Q1

REPORT INFORMATION
  Report Type: Spontaneous
  Country: SE (occurrence: SE)
  Receive Date: 20200108
  Receipt Date: 20200108
  Transmission Date: 20200409
  Serious: Yes (Hospitalization)
  Sender: FDA-Public Use
  Company Number: SE-PFIZER INC-2020006276

PATIENT
  Sex: Female

DRUGS (3)
  1. THERALEN [Suspect]
     Active Substance: TRIMEPRAZINE
     Dosage: 250 MG, SINGLE
     Route: 048
     Dates: start: 20190112, end: 20190112
  2. PROPAVAN [Suspect]
     Active Substance: PROPIOMAZINE
     Dosage: 500 MG, SINGLE (50 PCS)
     Route: 048
     Dates: start: 20190112, end: 20190112
  3. VENLAFAXINE HCL [Suspect]
     Active Substance: VENLAFAXINE HYDROCHLORIDE
     Dosage: 600 MG, SINGLE (4 CPS)
     Route: 048
     Dates: start: 20190112, end: 20190112

REACTIONS (4)
  - Intentional self-injury [Unknown]
  - Anxiety [Unknown]
  - Intentional overdose [Unknown]
  - Suicide attempt [Unknown]

NARRATIVE: CASE EVENT DATE: 20190112
